FAERS Safety Report 9528015 (Version 1)
Quarter: 2013Q1

REPORT INFORMATION
  Report Type: Spontaneous
  Country: US (occurrence: None)
  Receive Date: 20130314
  Receipt Date: 20130314
  Transmission Date: 20140127
  Serious: No
  Sender: FDA-Public Use
  Company Number: 1211USA009671

PATIENT
  Age: 56 Year
  Sex: Female

DRUGS (9)
  1. VICTRELIS (BOCEPREVIR) CAPSULE, 200MG [Suspect]
     Indication: HEPATITIS C
     Route: 048
     Dates: start: 20111124, end: 20120503
  2. RIBASPHERE (RIBAVIRIN) [Suspect]
     Dates: start: 20111124, end: 20120503
  3. PEGASYS (PEGINTERFERON ALFA-2A) [Suspect]
     Dates: start: 20111124, end: 20120503
  4. PAXIL (PAROXETINE HYDROCHLORIDE) [Concomitant]
  5. SOMA (CARISOPRODOL) [Concomitant]
  6. CLONAZEPAM (CLONAZEPAM) (CLONAZEPAM) [Concomitant]
  7. VITAMIN D (UNSPECIFIED) (VITAMIN D (UNSPECIFIED)) [Concomitant]
  8. ASPIRIN (ASPIRIN) [Concomitant]
  9. FOLIC ACID (FOLIC ACID) [Concomitant]

REACTIONS (5)
  - Dyspnoea [None]
  - Fatigue [None]
  - Fatigue [None]
  - Anaemia [None]
  - Rash [None]
